FAERS Safety Report 24164406 (Version 1)
Quarter: 2024Q3

REPORT INFORMATION
  Report Type: Spontaneous
  Country: GB (occurrence: GB)
  Receive Date: 20240801
  Receipt Date: 20240801
  Transmission Date: 20241017
  Serious: Yes (Other)
  Sender: REGENERON
  Company Number: GB-REGENERON PHARMACEUTICALS, INC.-2024-081921

PATIENT
  Age: 71 Year
  Sex: Male

DRUGS (1)
  1. LIBTAYO [Suspect]
     Active Substance: CEMIPLIMAB-RWLC
     Indication: Product used for unknown indication
     Dosage: 5 UNK
     Dates: start: 202003, end: 202007

REACTIONS (7)
  - Squamous cell carcinoma [Unknown]
  - Polymyalgia rheumatica [Unknown]
  - Pneumonitis [Unknown]
  - Mass [Unknown]
  - Neoplasm [Unknown]
  - Toxicity to various agents [Unknown]
  - Pruritus [Unknown]
